FAERS Safety Report 6183151-3 (Version None)
Quarter: 2009Q2

REPORT INFORMATION
  Report Type: 
  Country: None (occurrence: None)
  Receive Date: 20090507
  Receipt Date: 20090427
  Transmission Date: 20091009
  Serious: Yes (Hospitalization)
  Sender: FDA-Public Use
  Company Number: US-CELGENEUS-163-20785-09042254

PATIENT

DRUGS (3)
  1. THALOMID [Suspect]
     Indication: AMYLOIDOSIS
     Route: 048
  2. DEXAMETHASONE 4MG TAB [Suspect]
     Indication: AMYLOIDOSIS
     Route: 065
  3. BORTEZOMIB [Suspect]
     Indication: AMYLOIDOSIS
     Route: 065

REACTIONS (7)
  - CARDIAC FAILURE CONGESTIVE [None]
  - OSTEONECROSIS [None]
  - PNEUMOCOCCAL BACTERAEMIA [None]
  - PNEUMONIA FUNGAL [None]
  - PNEUMONIA VIRAL [None]
  - PULMONARY EMBOLISM [None]
  - SINUSITIS [None]
